FAERS Safety Report 12869692 (Version 2)
Quarter: 2016Q4

REPORT INFORMATION
  Report Type: Report from Study
  Country: BR (occurrence: BR)
  Receive Date: 20161021
  Receipt Date: 20161102
  Transmission Date: 20170207
  Serious: Yes (Other)
  Sender: FDA-Public Use
  Company Number: PHHY2016BR143039

PATIENT
  Sex: Female
  Weight: 43 kg

DRUGS (2)
  1. OMNITROPE [Suspect]
     Active Substance: SOMATROPIN
     Indication: FAILURE TO THRIVE
     Dosage: 2 MG, QD
     Route: 058
  2. LECTRUM [Concomitant]
     Active Substance: LEUPROLIDE ACETATE
     Indication: MENSTRUAL CYCLE MANAGEMENT
     Route: 065

REACTIONS (1)
  - Exostosis of jaw [Not Recovered/Not Resolved]
